FAERS Safety Report 17984320 (Version 5)
Quarter: 2021Q1

REPORT INFORMATION
  Report Type: Report from Study
  Country: US (occurrence: US)
  Receive Date: 20200706
  Receipt Date: 20210318
  Transmission Date: 20210419
  Serious: Yes (Other)
  Sender: FDA-Public Use
  Company Number: NVSC2020US186915

PATIENT
  Age: 20 Year
  Sex: Male
  Weight: 57.2 kg

DRUGS (3)
  1. FLUDARABINE [Concomitant]
     Active Substance: FLUDARABINE PHOSPHATE
     Indication: CHEMOTHERAPY
     Dosage: 30 MG/M2, QD
     Route: 042
  2. CYCLOPHOSPHAMIDE. [Concomitant]
     Active Substance: CYCLOPHOSPHAMIDE
     Indication: CHEMOTHERAPY
     Dosage: 500 MG/M2, QD
     Route: 042
  3. KYMRIAH [Suspect]
     Active Substance: TISAGENLECLEUCEL
     Indication: ACUTE LYMPHOCYTIC LEUKAEMIA
     Dosage: UNK
     Route: 041
     Dates: start: 20200602

REACTIONS (12)
  - Platelet count decreased [Unknown]
  - Myalgia [Recovered/Resolved]
  - B-lymphocyte count abnormal [Not Recovered/Not Resolved]
  - Pain [Unknown]
  - Hypotension [Recovered/Resolved]
  - Cytopenia [Unknown]
  - Lymphocyte count decreased [Unknown]
  - Pyrexia [Recovered/Resolved]
  - Cytokine release syndrome [Recovered/Resolved]
  - Chills [Recovered/Resolved]
  - Neutropenia [Unknown]
  - White blood cell count decreased [Unknown]

NARRATIVE: CASE EVENT DATE: 20200605
